FAERS Safety Report 17456217 (Version 1)
Quarter: 2020Q1

REPORT INFORMATION
  Report Type: Report from Study
  Country: US (occurrence: US)
  Receive Date: 20200225
  Receipt Date: 20200225
  Transmission Date: 20200409
  Serious: Yes (Other)
  Sender: FDA-Public Use
  Company Number: US-ROCHE-2551215

PATIENT
  Age: 51 Year
  Sex: Female
  Weight: 71.73 kg

DRUGS (14)
  1. VALTREX [Concomitant]
     Active Substance: VALACYCLOVIR HYDROCHLORIDE
     Indication: HERPES SIMPLEX
     Dosage: AS NEEDED FOR OUTBREAK
     Route: 048
     Dates: start: 200904
  2. TOPIRAMATE. [Concomitant]
     Active Substance: TOPIRAMATE
     Indication: MIGRAINE
     Route: 048
  3. BUTRANS [Concomitant]
     Active Substance: BUPRENORPHINE
     Indication: PAIN
     Dosage: 5 MICROGRAM PER HOUR
     Route: 062
     Dates: start: 20190215, end: 20191109
  4. OCREVUS [Suspect]
     Active Substance: OCRELIZUMAB
     Indication: RELAPSING-REMITTING MULTIPLE SCLEROSIS
     Dosage: INITIAL DOSE SPLIT 2 WEEK APART, AND THEN 6 MONTHLY.?DATE OF TREATMENT: 05/AUG/2019.
     Route: 042
     Dates: start: 20190716, end: 202001
  5. MOVANTIK [Suspect]
     Active Substance: NALOXEGOL OXALATE
     Indication: CONSTIPATION
     Route: 048
     Dates: start: 20190914, end: 202001
  6. OCREVUS [Suspect]
     Active Substance: OCRELIZUMAB
     Indication: MULTIPLE SCLEROSIS
  7. MODAFINIL. [Concomitant]
     Active Substance: MODAFINIL
     Indication: FATIGUE
     Route: 048
  8. LEVOTHYROXINE. [Concomitant]
     Active Substance: LEVOTHYROXINE
     Indication: HYPOTHYROIDISM
     Route: 048
  9. HYDROCODONE/ACETAMINOPHEN [Concomitant]
     Active Substance: ACETAMINOPHEN\HYDROCODONE
     Indication: PAIN
     Dosage: 10/325 MG AS NEEDED
     Route: 048
  10. ZYRTEC [Concomitant]
     Active Substance: CETIRIZINE HYDROCHLORIDE
     Route: 048
  11. PREGABALIN. [Concomitant]
     Active Substance: PREGABALIN
     Indication: NEURALGIA
     Route: 048
  12. MODAFINIL. [Concomitant]
     Active Substance: MODAFINIL
     Indication: MULTIPLE SCLEROSIS
  13. ATORVASTATIN [Concomitant]
     Active Substance: ATORVASTATIN
     Indication: BLOOD CHOLESTEROL INCREASED
     Route: 048
  14. ABREVA [Concomitant]
     Active Substance: DOCOSANOL
     Indication: HERPES SIMPLEX

REACTIONS (11)
  - Herpes simplex [Not Recovered/Not Resolved]
  - Sinusitis [Not Recovered/Not Resolved]
  - Throat irritation [Not Recovered/Not Resolved]
  - Fungal infection [Recovered/Resolved]
  - Nausea [Recovered/Resolved]
  - Headache [Recovered/Resolved]
  - Constipation [Not Recovered/Not Resolved]
  - Inflammation [Not Recovered/Not Resolved]
  - Dermatitis [Not Recovered/Not Resolved]
  - Pain [Not Recovered/Not Resolved]
  - Dysphagia [Not Recovered/Not Resolved]

NARRATIVE: CASE EVENT DATE: 201909
